FAERS Safety Report 6267827-5 (Version None)
Quarter: 2009Q3

REPORT INFORMATION
  Report Type: 
  Country: None (occurrence: None)
  Receive Date: 20090714
  Receipt Date: 20090602
  Transmission Date: 20100115
  Serious: No
  Sender: FDA-Public Use
  Company Number: US-BAYER-200911718BCC

PATIENT
  Age: 52 Year
  Sex: Female

DRUGS (3)
  1. ALEVE [Suspect]
     Indication: ARTHRALGIA
     Dosage: TOTAL DAILY DOSE: 440 MG  UNIT DOSE: 220 MG
     Route: 048
     Dates: start: 20070501, end: 20080501
  2. ALEVE [Suspect]
     Dosage: TOTAL DAILY DOSE: 220 MG  UNIT DOSE: 220 MG
     Route: 048
     Dates: start: 20080501, end: 20080501
  3. ALEVE [Suspect]
     Route: 048
     Dates: start: 20090501

REACTIONS (2)
  - INITIAL INSOMNIA [None]
  - PSYCHOMOTOR HYPERACTIVITY [None]
